FAERS Safety Report 10660421 (Version 2)
Quarter: 2014Q4

REPORT INFORMATION
  Report Type: Spontaneous
  Country: US (occurrence: US)
  Receive Date: 20141217
  Receipt Date: 20141217
  Transmission Date: 20150529
  Serious: No
  Sender: FDA-Public Use
  Company Number: US-GLAXOSMITHKLINE-A1085619A

PATIENT

DRUGS (1)
  1. VOTRIENT [Suspect]
     Active Substance: PAZOPANIB HYDROCHLORIDE
     Indication: RENAL CANCER
     Dosage: 400 MG DAILY INCREASED TO 600 MG DAILY HAD SYMPTOMS DECREASED BACK TO 400 MG DAILY
     Route: 065
     Dates: start: 20101202

REACTIONS (10)
  - Mole excision [Unknown]
  - Diarrhoea [Unknown]
  - Soft tissue disorder [Not Recovered/Not Resolved]
  - Muscle disorder [Recovering/Resolving]
  - Hair colour changes [Unknown]
  - Impaired healing [Unknown]
  - Uterine dilation and curettage [Unknown]
  - Onychalgia [Unknown]
  - Thyroid disorder [Unknown]
  - Fatigue [Recovering/Resolving]

NARRATIVE: CASE EVENT DATE: 201402
